FAERS Safety Report 16123373 (Version 1)
Quarter: 2019Q1

REPORT INFORMATION
  Report Type: Spontaneous
  Country: NZ (occurrence: NZ)
  Receive Date: 20190327
  Receipt Date: 20190327
  Transmission Date: 20190418
  Serious: Yes (Death, Hospitalization, Other)
  Sender: FDA-Public Use
  Company Number: NZ-009507513-1903NZL010424

PATIENT
  Age: 71 Year
  Sex: Male

DRUGS (1)
  1. PEMBROLIZUMAB. [Suspect]
     Active Substance: PEMBROLIZUMAB
     Dosage: 1 CYCLE, CYCLICAL
     Dates: start: 20170324

REACTIONS (3)
  - Parkinson^s disease [Recovering/Resolving]
  - Death [Fatal]
  - Limbic encephalitis [Unknown]

NARRATIVE: CASE EVENT DATE: 2017
